FAERS Safety Report 10926913 (Version 1)
Quarter: 2015Q1

REPORT INFORMATION
  Report Type: Spontaneous
  Country: CH (occurrence: None)
  Receive Date: 20150316
  Receipt Date: 20150316
  Transmission Date: 20150721
  Serious: Yes (Other)
  Sender: FDA-Public Use
  Company Number: ADR-2015-00505

PATIENT
  Age: 5 Year
  Sex: Male

DRUGS (3)
  1. BACLOFEN ORAL [Suspect]
     Active Substance: BACLOFEN
  2. PROPHYLACTIC ANTICONVULSANTS ORAL [Suspect]
     Active Substance: UNSPECIFIED INGREDIENT
  3. BACLOFEN INTRATHECAL [Suspect]
     Active Substance: BACLOFEN

REACTIONS (6)
  - Implant site infection [None]
  - Infection [None]
  - Cerebrospinal fluid leakage [None]
  - Scoliosis [None]
  - Postoperative wound infection [None]
  - Muscle spasticity [None]

NARRATIVE: CASE EVENT DATE: 20140924
